FAERS Safety Report 19817234 (Version 1)
Quarter: 2021Q3

REPORT INFORMATION
  Report Type: Spontaneous
  Country: CN (occurrence: CN)
  Receive Date: 20210910
  Receipt Date: 20210910
  Transmission Date: 20211014
  Serious: Yes (Hospitalization, Other)
  Sender: FDA-Public Use
  Company Number: CN-PFIZER INC-202101134272

PATIENT
  Age: 55 Year
  Sex: Male
  Weight: 66 kg

DRUGS (1)
  1. ATORVASTATIN CALCIUM. [Suspect]
     Active Substance: ATORVASTATIN CALCIUM
     Indication: HYPERLIPIDAEMIA
     Dosage: 20.0 ML, 1X/DAY
     Route: 048
     Dates: start: 20210401, end: 20210630

REACTIONS (3)
  - Hepatic function abnormal [Not Recovered/Not Resolved]
  - Hepatitis alcoholic [Unknown]
  - Drug-induced liver injury [Unknown]

NARRATIVE: CASE EVENT DATE: 20210630
